FAERS Safety Report 12942756 (Version 3)
Quarter: 2017Q1

REPORT INFORMATION
  Report Type: Spontaneous
  Country: JP (occurrence: JP)
  Receive Date: 20161114
  Receipt Date: 20170202
  Transmission Date: 20170428
  Serious: Yes (Other)
  Sender: FDA-Public Use
  Company Number: JP-BRISTOL-MYERS SQUIBB COMPANY-BMS-2016-095971

PATIENT

DRUGS (1)
  1. ORENCIA [Suspect]
     Active Substance: ABATACEPT
     Indication: SERONEGATIVE ARTHRITIS
     Dosage: UNK
     Route: 042

REACTIONS (2)
  - Carcinoembryonic antigen increased [Unknown]
  - Product use issue [Unknown]
